FAERS Safety Report 7405137-0 (Version None)
Quarter: 2011Q2

REPORT INFORMATION
  Report Type: 
  Country: None (occurrence: None)
  Receive Date: 20110411
  Receipt Date: 20110404
  Transmission Date: 20111010
  Serious: Yes (Hospitalization)
  Sender: FDA-Public Use
  Company Number: AU-AMGEN-AUSCT2011018359

PATIENT

DRUGS (4)
  1. DOCETAXEL [Concomitant]
  2. PANITUMUMAB [Suspect]
     Indication: GASTROOESOPHAGEAL CANCER
  3. CISPLATIN [Concomitant]
  4. FLUOROURACIL [Concomitant]

REACTIONS (4)
  - DIARRHOEA [None]
  - FEBRILE NEUTROPENIA [None]
  - DECREASED APPETITE [None]
  - VOMITING [None]
